FAERS Safety Report 4306918-2 (Version None)
Quarter: 2004Q1

REPORT INFORMATION
  Report Type: 
  Country: None (occurrence: None)
  Receive Date: 20040227
  Receipt Date: 20030827
  Transmission Date: 20041129
  Serious: Yes (Death, Hospitalization)
  Sender: FDA-Public Use
  Company Number: PHEH2003US07859

PATIENT
  Age: 67 Year
  Sex: Female

DRUGS (19)
  1. POTASSIUM [Concomitant]
     Dosage: 20 MEQ, QD
  2. ALDACTONE [Concomitant]
     Dosage: 50 MG, QD
  3. PLAVIX [Concomitant]
     Dosage: 75 MG, QD
  4. URECHOLINE [Concomitant]
     Dosage: 25 MG, TID
  5. MECLIZINE [Concomitant]
  6. ACETYLSALICYLIC ACID SRT [Concomitant]
     Dosage: 81 MG, QD
  7. PROTONIX [Concomitant]
     Dosage: 40 MG, QD
  8. XANAX [Concomitant]
     Dosage: .5 MG, TID
  9. INSULIN                                 /N/A/ [Concomitant]
  10. ZELNORM [Suspect]
     Dosage: 6 MG, BID
     Dates: start: 20030616, end: 20030811
  11. WARFARIN SODIUM [Concomitant]
     Dosage: 5 MG/3 DAYS 4 MG/ 2 DAYS PER WEE
  12. DIGOXIN [Concomitant]
  13. AMIODARONE HCL [Concomitant]
     Dosage: 100 MG, QD
  14. ZAROXOLYN [Concomitant]
  15. FUROSEMIDE [Concomitant]
     Dosage: 40 MG, BID
     Route: 048
  16. CARDIZEM [Concomitant]
     Dosage: 120 MG, QD
  17. IMDUR [Concomitant]
  18. ALTACE [Concomitant]
     Dosage: 2.5 MG, QD
  19. LIPITOR [Concomitant]
     Dosage: 80 MG, QD

REACTIONS (42)
  - ABDOMINAL PAIN [None]
  - ABDOMINAL SEPSIS [None]
  - ANAEMIA [None]
  - ARTHRALGIA [None]
  - ASTHENIA [None]
  - ATRIAL FIBRILLATION [None]
  - BLOOD AMYLASE INCREASED [None]
  - BLOOD CREATINE PHOSPHOKINASE INCREASED [None]
  - BLOOD CREATININE INCREASED [None]
  - BLOOD POTASSIUM INCREASED [None]
  - BLOOD SODIUM DECREASED [None]
  - BLOOD UREA INCREASED [None]
  - BRONCHITIS [None]
  - CARDIAC FAILURE CONGESTIVE [None]
  - CARDIOMEGALY [None]
  - CARDIOPULMONARY FAILURE [None]
  - CHEST PAIN [None]
  - COLITIS ISCHAEMIC [None]
  - DIVERTICULITIS [None]
  - DYSPNOEA [None]
  - FAECAL VOLUME INCREASED [None]
  - GENERAL PHYSICAL HEALTH DETERIORATION [None]
  - HYPOKALAEMIA [None]
  - HYPOTENSION [None]
  - INFLAMMATORY BOWEL DISEASE [None]
  - INTESTINAL INFARCTION [None]
  - INTESTINAL ISCHAEMIA [None]
  - INTESTINAL PERFORATION [None]
  - ISCHAEMIC CARDIOMYOPATHY [None]
  - LIPASE INCREASED [None]
  - MUSCULOSKELETAL PAIN [None]
  - MYOCARDIAL INFARCTION [None]
  - NAUSEA [None]
  - OEDEMA PERIPHERAL [None]
  - PAIN IN EXTREMITY [None]
  - PANCREATITIS [None]
  - PNEUMONIA [None]
  - RENAL FAILURE [None]
  - RENAL FAILURE ACUTE [None]
  - RESPIRATORY FAILURE [None]
  - RHABDOMYOLYSIS [None]
  - SHOCK [None]
